FAERS Safety Report 18890774 (Version 4)
Quarter: 2021Q1

REPORT INFORMATION
  Report Type: Report from Study
  Country: None (occurrence: DO)
  Receive Date: 20210215
  Receipt Date: 20210326
  Transmission Date: 20210420
  Serious: Yes (Other)
  Sender: FDA-Public Use
  Company Number: DO-ABBVIE-21K-279-3774181-00

PATIENT
  Age: 56 Year
  Sex: Female
  Weight: 68 kg

DRUGS (3)
  1. HUMIRA [Suspect]
     Active Substance: ADALIMUMAB
     Indication: COLITIS ULCERATIVE
     Route: 058
  2. HUMIRA [Suspect]
     Active Substance: ADALIMUMAB
     Indication: COLITIS ULCERATIVE
     Route: 058
     Dates: start: 20161109
  3. HUMIRA [Suspect]
     Active Substance: ADALIMUMAB
     Route: 058

REACTIONS (15)
  - Tooth injury [Recovering/Resolving]
  - Gastrointestinal inflammation [Not Recovered/Not Resolved]
  - Blood cholesterol increased [Recovered/Resolved]
  - Nausea [Not Recovered/Not Resolved]
  - Hepatic steatosis [Recovered/Resolved]
  - Constipation [Not Recovered/Not Resolved]
  - Diarrhoea [Recovered/Resolved]
  - Abdominal pain [Recovered/Resolved]
  - Colitis [Not Recovered/Not Resolved]
  - Hypertension [Recovered/Resolved]
  - Blood triglycerides increased [Recovered/Resolved]
  - Dizziness [Not Recovered/Not Resolved]
  - Hypertension [Recovered/Resolved]
  - Asthenia [Not Recovered/Not Resolved]
  - Weight decreased [Recovering/Resolving]

NARRATIVE: CASE EVENT DATE: 202101
